FAERS Safety Report 24107216 (Version 2)
Quarter: 2025Q2

REPORT INFORMATION
  Report Type: Spontaneous
  Country: US (occurrence: US)
  Receive Date: 20240718
  Receipt Date: 20250516
  Transmission Date: 20250717
  Serious: No
  Sender: APOTEX
  Company Number: US-APOTEX-2024AP008249

PATIENT
  Age: 73 Year
  Sex: Female
  Weight: 62 kg

DRUGS (12)
  1. PREGABALIN [Suspect]
     Active Substance: PREGABALIN
     Indication: Hypoaesthesia
     Dosage: 50 MILLIGRAM, BID
     Route: 065
  2. PREGABALIN [Suspect]
     Active Substance: PREGABALIN
     Indication: Pain
  3. PREGABALIN [Suspect]
     Active Substance: PREGABALIN
     Indication: Paraesthesia
  4. PREGABALIN [Suspect]
     Active Substance: PREGABALIN
     Indication: Allodynia
  5. PREGABALIN [Suspect]
     Active Substance: PREGABALIN
     Indication: Pruritus
  6. PREGABALIN [Suspect]
     Active Substance: PREGABALIN
     Indication: Asthenia
  7. OXYCODONE [Suspect]
     Active Substance: OXYCODONE
     Indication: Hypoaesthesia
     Dosage: 5 MILLIGRAM, Q.4H.
     Route: 065
  8. OXYCODONE [Suspect]
     Active Substance: OXYCODONE
     Indication: Pain
  9. OXYCODONE [Suspect]
     Active Substance: OXYCODONE
     Indication: Paraesthesia
  10. OXYCODONE [Suspect]
     Active Substance: OXYCODONE
     Indication: Allodynia
  11. OXYCODONE [Suspect]
     Active Substance: OXYCODONE
     Indication: Pruritus
  12. OXYCODONE [Suspect]
     Active Substance: OXYCODONE
     Indication: Asthenia

REACTIONS (2)
  - Dizziness [Unknown]
  - Memory impairment [Unknown]
